FAERS Safety Report 7217521-9 (Version None)
Quarter: 2010Q4

REPORT INFORMATION
  Report Type: 
  Country: None (occurrence: None)
  Receive Date: 20101223
  Receipt Date: 20101217
  Transmission Date: 20110411
  Serious: Yes (Hospitalization, Other)
  Sender: FDA-Public Use
  Company Number: 2010SP004854

PATIENT
  Age: 40 Year
  Sex: Female
  Weight: 90.7194 kg

DRUGS (3)
  1. NUVARING [Suspect]
     Indication: MENORRHAGIA
     Dosage: VAG
     Route: 067
     Dates: start: 20080401, end: 20080728
  2. NUVARING [Suspect]
     Indication: PREMENSTRUAL SYNDROME
     Dosage: VAG
     Route: 067
     Dates: start: 20080401, end: 20080728
  3. ADVIL [Concomitant]

REACTIONS (9)
  - ARTHRALGIA [None]
  - ATELECTASIS [None]
  - BACK PAIN [None]
  - MUSCLE SPASMS [None]
  - OEDEMA [None]
  - PLEURAL EFFUSION [None]
  - PNEUMONIA [None]
  - PULMONARY EMBOLISM [None]
  - PULMONARY INFARCTION [None]
